FAERS Safety Report 11360145 (Version 1)
Quarter: 2015Q3

REPORT INFORMATION
  Report Type: Spontaneous
  Country: DE (occurrence: DE)
  Receive Date: 20150810
  Receipt Date: 20150810
  Transmission Date: 20151125
  Serious: Yes (Hospitalization)
  Sender: FDA-Public Use
  Company Number: DE-AUROBINDO-AUR-APL-2015-06649

PATIENT
  Age: 93 Year
  Sex: Female

DRUGS (3)
  1. RISPERIDONE. [Suspect]
     Active Substance: RISPERIDONE
     Indication: PRODUCT USED FOR UNKNOWN INDICATION
     Dosage: 0.5-0.5-0.5MG
     Route: 065
  2. BUSPIRONE [Suspect]
     Active Substance: BUSPIRONE HYDROCHLORIDE
     Indication: PRODUCT USED FOR UNKNOWN INDICATION
     Dosage: 5 MG, UNK
     Route: 065
  3. DOXEPIN [Suspect]
     Active Substance: DOXEPIN
     Indication: PRODUCT USED FOR UNKNOWN INDICATION
     Dosage: 10-10-25MG
     Route: 065

REACTIONS (6)
  - Body temperature increased [Recovered/Resolved]
  - Hypothermia [Recovered/Resolved]
  - Hypervigilance [Recovered/Resolved]
  - Somnolence [Recovered/Resolved]
  - Autonomic nervous system imbalance [Recovered/Resolved]
  - Feeling cold [Recovered/Resolved]
